FAERS Safety Report 4564191-4 (Version None)
Quarter: 2005Q1

REPORT INFORMATION
  Report Type: 
  Country: None (occurrence: None)
  Receive Date: 20050126
  Receipt Date: 20050110
  Transmission Date: 20050727
  Serious: Yes (Hospitalization)
  Sender: FDA-Public Use
  Company Number: 2005CG00084

PATIENT
  Age: 26 Year
  Sex: Male
  Weight: 62 kg

DRUGS (4)
  1. OMEPRAZOLE [Suspect]
     Dosage: 20 MG DAILY PO
     Route: 048
     Dates: start: 20040903, end: 20041003
  2. DI-ANTALVIC [Suspect]
     Dosage: 4 DF DAILY PO
     Route: 048
     Dates: start: 20040903, end: 20041003
  3. KETOPROFEN [Suspect]
     Dosage: 100 MG BID PO
     Route: 048
     Dates: start: 20040903, end: 20041003
  4. SALAZOPYRIN [Suspect]
     Dosage: 500 MG TID PO
     Route: 048
     Dates: start: 20040903, end: 20041002

REACTIONS (9)
  - ABDOMINAL PAIN [None]
  - CYTOLYTIC HEPATITIS [None]
  - DIARRHOEA [None]
  - EOSINOPHILIA [None]
  - LYMPHADENOPATHY [None]
  - NAUSEA [None]
  - PURPURA [None]
  - RASH ERYTHEMATOUS [None]
  - SKIN EXFOLIATION [None]
